FAERS Safety Report 22916111 (Version 2)
Quarter: 2023Q4

REPORT INFORMATION
  Report Type: Report from Study
  Country: FR (occurrence: FR)
  Receive Date: 20230907
  Receipt Date: 20231117
  Transmission Date: 20240110
  Serious: Yes (Hospitalization, Other)
  Sender: FDA-Public Use
  Company Number: FR-SA-SAC20230831001351

PATIENT
  Age: 49 Year
  Sex: Male
  Weight: 84 kg

DRUGS (8)
  1. ISATUXIMAB [Suspect]
     Active Substance: ISATUXIMAB
     Indication: Plasma cell myeloma
     Dosage: 880 (D1 D8 D15)
     Route: 042
     Dates: start: 20230119, end: 20230119
  2. ISATUXIMAB [Suspect]
     Active Substance: ISATUXIMAB
     Dosage: 880 (D1 D8 D15)
     Route: 042
     Dates: start: 20230713, end: 20230713
  3. CARFILZOMIB [Suspect]
     Active Substance: CARFILZOMIB
     Indication: Plasma cell myeloma
     Dosage: 41 (D1 D8)
     Route: 042
     Dates: start: 20230119, end: 20230119
  4. CARFILZOMIB [Suspect]
     Active Substance: CARFILZOMIB
     Dosage: 41 (D1 D8)
     Route: 042
     Dates: start: 20230713, end: 20230713
  5. LENALIDOMIDE [Suspect]
     Active Substance: LENALIDOMIDE
     Indication: Plasma cell myeloma
     Dosage: 25 MG (D1 TO D15)
     Route: 048
     Dates: start: 20230119, end: 20230119
  6. LENALIDOMIDE [Suspect]
     Active Substance: LENALIDOMIDE
     Dosage: 25 MG (D1 TO D15)
     Route: 048
     Dates: start: 20230719, end: 20230719
  7. DEXAMETHASONE [Suspect]
     Active Substance: DEXAMETHASONE
     Indication: Plasma cell myeloma
     Dosage: 40 MG (D1 D8 D15 D22)
     Route: 048
     Dates: start: 20230119, end: 20230119
  8. DEXAMETHASONE [Suspect]
     Active Substance: DEXAMETHASONE
     Dosage: 40 MG (D1 D8 D15 D22)
     Route: 048
     Dates: start: 20230720, end: 20230720

REACTIONS (1)
  - COVID-19 [Recovered/Resolved]

NARRATIVE: CASE EVENT DATE: 20230829
